FAERS Safety Report 5090492-X (Version None)
Quarter: 2006Q3

REPORT INFORMATION
  Report Type: 
  Country: None (occurrence: None)
  Receive Date: 20060828
  Receipt Date: 20060516
  Transmission Date: 20061208
  Serious: No
  Sender: FDA-Public Use
  Company Number: US-GLAXOSMITHKLINE-A0605813A

PATIENT
  Age: 63 Year
  Sex: Female

DRUGS (5)
  1. WELLBUTRIN XL [Suspect]
     Indication: ENERGY INCREASED
     Dosage: 150MG PER DAY
     Route: 048
  2. CRESTOR [Concomitant]
  3. ZETIA [Concomitant]
  4. TIAZAC [Concomitant]
  5. PRINZIDE [Concomitant]

REACTIONS (1)
  - BLOOD GLUCOSE INCREASED [None]
